FAERS Safety Report 5726719-8 (Version None)
Quarter: 2008Q2

REPORT INFORMATION
  Report Type: 
  Country: None (occurrence: None)
  Receive Date: 20080502
  Receipt Date: 20080428
  Transmission Date: 20081010
  Serious: Yes (Disabling, Other)
  Sender: FDA-Public Use
  Company Number: US-BRISTOL-MYERS SQUIBB COMPANY-14137673

PATIENT
  Age: 51 Year
  Sex: Female

DRUGS (5)
  1. IXEMPRA KIT [Suspect]
     Indication: BREAST CANCER
     Route: 042
     Dates: start: 20080314
  2. BENADRYL [Concomitant]
     Dates: start: 20080314
  3. CIMETIDINE [Concomitant]
     Dates: start: 20080314
  4. DECADRON [Concomitant]
     Dates: start: 20080314
  5. ANZEMET [Concomitant]
     Dates: start: 20080314

REACTIONS (7)
  - ARTHRALGIA [None]
  - FATIGUE [None]
  - MYALGIA [None]
  - ODYNOPHAGIA [None]
  - SKIN EXFOLIATION [None]
  - STOMATITIS [None]
  - VAGINAL ULCERATION [None]
